FAERS Safety Report 5940330-5 (Version None)
Quarter: 2008Q4

REPORT INFORMATION
  Report Type: 
  Country: None (occurrence: None)
  Receive Date: 20081104
  Receipt Date: 20081029
  Transmission Date: 20090506
  Serious: Yes (Hospitalization)
  Sender: FDA-Public Use
  Company Number: B0544798A

PATIENT
  Age: 42 Year
  Sex: Male

DRUGS (3)
  1. EPIVIR [Suspect]
     Indication: HIV INFECTION
     Route: 048
     Dates: start: 20070101
  2. KALETRA [Suspect]
     Indication: HIV INFECTION
     Route: 048
  3. ZERIT [Suspect]
     Indication: HIV INFECTION
     Dosage: 80MG PER DAY
     Route: 048
     Dates: start: 20070914

REACTIONS (2)
  - HEPATOTOXICITY [None]
  - TRANSAMINASES INCREASED [None]
